FAERS Safety Report 18109322 (Version 1)
Quarter: 2020Q3

REPORT INFORMATION
  Report Type: Spontaneous
  Country: US (occurrence: US)
  Receive Date: 20200804
  Receipt Date: 20200804
  Transmission Date: 20201103
  Serious: Yes (Hospitalization, Disabling, Other)
  Sender: FDA-Public Use
  Company Number: None

PATIENT
  Age: 29 Year
  Sex: Female
  Weight: 48.08 kg

DRUGS (8)
  1. MULTIHANCE [Suspect]
     Active Substance: GADOBENATE DIMEGLUMINE
  2. PYRIDIUM [Concomitant]
     Active Substance: PHENAZOPYRIDINE
  3. MECLIZINE [Concomitant]
     Active Substance: MECLIZINE HYDROCHLORIDE
  4. ZOFRAN [Concomitant]
     Active Substance: ONDANSETRON HYDROCHLORIDE
  5. MOTRIN [Concomitant]
     Active Substance: IBUPROFEN
  6. DOMPERIDONE [Concomitant]
     Active Substance: DOMPERIDONE
  7. TYLONEL [Concomitant]
  8. XANEX [Concomitant]

REACTIONS (2)
  - Illness [None]
  - Disability [None]

NARRATIVE: CASE EVENT DATE: 20200429
